FAERS Safety Report 12551128 (Version 1)
Quarter: 2016Q3

REPORT INFORMATION
  Report Type: Spontaneous
  Country: US (occurrence: US)
  Receive Date: 20160713
  Receipt Date: 20160713
  Transmission Date: 20161109
  Serious: No
  Sender: FDA-Public Use
  Company Number: US-BEH-2016070091

PATIENT
  Age: 50 Year
  Sex: Female
  Weight: 70.3 kg

DRUGS (17)
  1. DIPHENHYDRAMINE. [Concomitant]
     Active Substance: DIPHENHYDRAMINE
  2. IMITREX [Concomitant]
     Active Substance: SUMATRIPTAN SUCCINATE
  3. DOXYCYCLINE. [Concomitant]
     Active Substance: DOXYCYCLINE
  4. TRAZODONE [Concomitant]
     Active Substance: TRAZODONE HYDROCHLORIDE
  5. EPIPEN [Concomitant]
     Active Substance: EPINEPHRINE
  6. LMX                                /00033401/ [Concomitant]
  7. PROTONIX [Concomitant]
     Active Substance: PANTOPRAZOLE SODIUM
  8. LIDOCAINE/PRILOCAINE [Concomitant]
     Active Substance: LIDOCAINE\PRILOCAINE
  9. LIPITOR [Concomitant]
     Active Substance: ATORVASTATIN CALCIUM
  10. FROVA [Concomitant]
     Active Substance: FROVATRIPTAN SUCCINATE
  11. ZANTAC [Concomitant]
     Active Substance: RANITIDINE HYDROCHLORIDE
  12. ONDANSETRON [Concomitant]
     Active Substance: ONDANSETRON
  13. RABEPRAZOLE [Concomitant]
     Active Substance: RABEPRAZOLE
  14. CYANOCOBALAMIN. [Concomitant]
     Active Substance: CYANOCOBALAMIN
  15. HIZENTRA [Suspect]
     Active Substance: HUMAN IMMUNOGLOBULIN G
     Indication: IMMUNODEFICIENCY COMMON VARIABLE
     Dosage: 8 G, QW
     Route: 058
  16. LANSOPRAZOLE. [Concomitant]
     Active Substance: LANSOPRAZOLE
  17. VITAMIN D                          /00107901/ [Concomitant]
     Active Substance: ERGOCALCIFEROL

REACTIONS (2)
  - Back pain [Unknown]
  - Device leakage [Unknown]

NARRATIVE: CASE EVENT DATE: 20160327
